FAERS Safety Report 7829085-7 (Version None)
Quarter: 2011Q4

REPORT INFORMATION
  Report Type: 
  Country: None (occurrence: None)
  Receive Date: 20111020
  Receipt Date: 20111007
  Transmission Date: 20120403
  Serious: Yes (Hospitalization)
  Sender: FDA-Public Use
  Company Number: CN-MYLANLABS-2011S1021391

PATIENT
  Age: 50 Year
  Sex: Female

DRUGS (4)
  1. AZATHIOPRINE [Suspect]
     Indication: PEMPHIGUS
     Dosage: 100 MG/D
     Route: 065
  2. PREDNISONE [Suspect]
     Dosage: }=1.0 MG/KG PER DAY
     Route: 065
  3. PREDNISONE [Suspect]
     Dosage: }=1.5 MG/KG PER DAY (INCLUDING MAXIMAL DOSAGE OF 1.8 MG/KG PER DAY)
     Route: 065
  4. PREDNISONE [Suspect]
     Indication: PEMPHIGUS
     Dosage: 100 MG/D
     Route: 065

REACTIONS (2)
  - PNEUMOCYSTIS JIROVECI PNEUMONIA [None]
  - SEPTIC SHOCK [None]
